FAERS Safety Report 7701050-X (Version None)
Quarter: 2011Q3

REPORT INFORMATION
  Report Type: 
  Country: None (occurrence: None)
  Receive Date: 20110822
  Receipt Date: 20110816
  Transmission Date: 20111222
  Serious: Yes (Hospitalization)
  Sender: FDA-Public Use
  Company Number: US-ELI_LILLY_AND_COMPANY-US201108005255

PATIENT
  Age: 64 Year
  Sex: Female

DRUGS (8)
  1. PACLITAXEL [Suspect]
     Indication: BREAST CANCER
     Dosage: UNK
     Dates: start: 20110607, end: 20110624
  2. VITAMIN D [Concomitant]
     Dosage: UNK
     Dates: start: 20110610
  3. PROCHLORPERAZINE [Concomitant]
     Dosage: UNK
     Dates: start: 20110610
  4. ONDANSETRON [Concomitant]
     Dosage: UNK
     Dates: start: 20110610
  5. CALCIUM CARBONATE [Concomitant]
     Dosage: UNK
     Dates: start: 20110610
  6. GEMCITABINE HYDROCHLORIDE [Suspect]
     Indication: BREAST CANCER
     Dosage: UNK
     Dates: start: 20110701
  7. PREGABALIN [Concomitant]
     Dosage: UNK
     Dates: start: 20110610
  8. DASATINIB [Suspect]
     Indication: BREAST CANCER
     Dosage: UNK
     Dates: start: 20110607, end: 20110624

REACTIONS (1)
  - HYPERSENSITIVITY [None]
